FAERS Safety Report 9033584 (Version 2)
Quarter: 2013Q1

REPORT INFORMATION
  Report Type: Spontaneous
  Country: US (occurrence: US)
  Receive Date: 20130128
  Receipt Date: 20130220
  Transmission Date: 20140127
  Serious: Yes (Hospitalization, Other)
  Sender: FDA-Public Use
  Company Number: US-TEVA-382486USA

PATIENT
  Age: 71 None
  Sex: Male

DRUGS (1)
  1. COPAXONE [Suspect]
     Indication: MULTIPLE SCLEROSIS
     Dates: start: 20000501

REACTIONS (2)
  - Spinal column stenosis [Recovering/Resolving]
  - Carpal tunnel syndrome [Recovering/Resolving]
